FAERS Safety Report 11708106 (Version 1)
Quarter: 2015Q4

REPORT INFORMATION
  Report Type: Spontaneous
  Country: US (occurrence: US)
  Receive Date: 20151104
  Receipt Date: 20151104
  Transmission Date: 20160304
  Serious: No
  Sender: FDA-Public Use
  Company Number: US-ELI_LILLY_AND_COMPANY-US201108003380

PATIENT
  Sex: Female

DRUGS (1)
  1. FORTEO [Suspect]
     Active Substance: TERIPARATIDE
     Indication: OSTEOPOROSIS
     Dosage: 20 UG, QD

REACTIONS (8)
  - Tremor [Unknown]
  - Gastrointestinal disorder [Unknown]
  - Asthenia [Unknown]
  - Dizziness [Unknown]
  - Movement disorder [Unknown]
  - Dysstasia [Unknown]
  - Heart rate increased [Unknown]
  - Eating disorder [Unknown]
